FAERS Safety Report 9152505 (Version 1)
Quarter: 2013Q1

REPORT INFORMATION
  Report Type: Spontaneous
  Country: CA (occurrence: CA)
  Receive Date: 20130308
  Receipt Date: 20130308
  Transmission Date: 20140127
  Serious: Yes (Hospitalization)
  Sender: FDA-Public Use
  Company Number: CA-BAXTER-2013BAX008204

PATIENT
  Sex: Male

DRUGS (3)
  1. DIANEAL PD1 [Suspect]
     Indication: PERITONEAL DIALYSIS
     Route: 033
  2. DIANEAL PD 101 SOLUTION WITH 0.5% DEXTROSE [Suspect]
     Indication: PERITONEAL DIALYSIS
     Route: 033
  3. EXTRANEAL [Suspect]
     Indication: PERITONEAL DIALYSIS
     Route: 033

REACTIONS (3)
  - Hernia [Unknown]
  - Gastrointestinal bacterial infection [Unknown]
  - Stomach mass [Unknown]
